FAERS Safety Report 4705217-4 (Version None)
Quarter: 2005Q2

REPORT INFORMATION
  Report Type: 
  Country: None (occurrence: None)
  Receive Date: 20050630
  Receipt Date: 20050630
  Transmission Date: 20051028
  Serious: Yes (Other)
  Sender: FDA-Public Use
  Company Number: None

PATIENT
  Age: 57 Year
  Sex: Male
  Weight: 73 kg

DRUGS (2)
  1. WARFARIN [Suspect]
     Indication: ATRIAL FIBRILLATION
     Dosage: 5 MG PO DAILY
     Route: 048
     Dates: start: 20050428
  2. WARFARIN [Suspect]
     Indication: ATRIAL FIBRILLATION
     Dosage: 5 MG PO DAILY
     Route: 048
     Dates: start: 20050510

REACTIONS (3)
  - CHEST PAIN [None]
  - GASTROINTESTINAL HAEMORRHAGE [None]
  - MUSCLE SPASMS [None]
